FAERS Safety Report 5417025-X (Version None)
Quarter: 2007Q3

REPORT INFORMATION
  Report Type: 
  Country: None (occurrence: None)
  Receive Date: 20070718
  Receipt Date: 20060901
  Transmission Date: 20080115
  Serious: Yes (Hospitalization)
  Sender: FDA-Public Use
  Company Number: 2006058703

PATIENT
  Age: 50 Year
  Sex: Male

DRUGS (3)
  1. CELEBREX [Suspect]
     Indication: HYPERTENSION
     Dosage: 200 MG (200 MG,1 IN 1 D)
  2. CELEBREX [Suspect]
     Indication: OSTEOARTHRITIS
     Dosage: 200 MG (200 MG,1 IN 1 D)
  3. CELEBREX [Suspect]
     Indication: PAIN
     Dosage: 200 MG (200 MG,1 IN 1 D)

REACTIONS (3)
  - CHEST PAIN [None]
  - HEADACHE [None]
  - HYPERTENSION [None]
